FAERS Safety Report 5669221-4 (Version None)
Quarter: 2008Q1

REPORT INFORMATION
  Report Type: 
  Country: None (occurrence: None)
  Receive Date: 20080317
  Receipt Date: 20080313
  Transmission Date: 20080703
  Serious: Yes (Death, Hospitalization, Other)
  Sender: FDA-Public Use
  Company Number: PHBS2007JP15211

PATIENT
  Age: 75 Year
  Sex: Female
  Weight: 59 kg

DRUGS (6)
  1. CALBLOCK [Concomitant]
     Dosage: 16 MG, UNK
     Route: 048
     Dates: start: 20050304
  2. FLUVASTATIN [Concomitant]
     Dosage: 20 MG, UNK
     Route: 048
     Dates: start: 20060220
  3. DIOVAN [Suspect]
     Indication: HYPERTENSION
     Dosage: 80 MG/DAY
     Route: 048
     Dates: start: 20050127, end: 20070615
  4. NORVASC [Concomitant]
     Dosage: 2.5 MG/DAY
     Dates: start: 19971020
  5. NORVASC [Concomitant]
     Dosage: 5 MG/DAY
     Dates: end: 20040127
  6. CARDENALIN [Concomitant]
     Indication: HYPERTENSION
     Dosage: 2 MG, UNK
     Route: 048
     Dates: start: 20070715

REACTIONS (3)
  - DEATH [None]
  - DYSPNOEA [None]
  - INTERSTITIAL LUNG DISEASE [None]
